FAERS Safety Report 20154574 (Version 4)
Quarter: 2021Q4

REPORT INFORMATION
  Report Type: Report from Study
  Country: CA (occurrence: None)
  Receive Date: 20211207
  Receipt Date: 20211221
  Transmission Date: 20220303
  Serious: Yes (Life-Threatening)
  Sender: FDA-Public Use
  Company Number: CA-ROCHE-2973621

PATIENT
  Age: 56 Year
  Sex: Female

DRUGS (11)
  1. VEMURAFENIB [Suspect]
     Active Substance: VEMURAFENIB
     Indication: Neoplasm malignant
     Route: 048
     Dates: start: 20211117, end: 20211127
  2. COBIMETINIB [Suspect]
     Active Substance: COBIMETINIB
     Indication: Neoplasm malignant
     Dosage: (ONCE DAILY X 21 DAYS THEN 7 DAYS OFF)
     Route: 048
     Dates: start: 20211117, end: 20211127
  3. DEXAMETHASONE [Concomitant]
     Active Substance: DEXAMETHASONE
     Dates: start: 202110
  4. DOMPERIDONE [Concomitant]
     Active Substance: DOMPERIDONE
     Dates: start: 202111
  5. FENTANYL [Concomitant]
     Active Substance: FENTANYL
     Dates: start: 202111
  6. HYDROMORPHONE [Concomitant]
     Active Substance: HYDROMORPHONE
     Dates: start: 202107
  7. HYDROMORPHONE [Concomitant]
     Active Substance: HYDROMORPHONE
     Dates: start: 202107
  8. LANSOPRAZOLE [Concomitant]
     Active Substance: LANSOPRAZOLE
     Dates: start: 202112
  9. MIDAZOLAM [Concomitant]
     Active Substance: MIDAZOLAM
     Dates: start: 202111
  10. OLANZAPINE [Concomitant]
     Active Substance: OLANZAPINE
     Dates: start: 202110
  11. POLYETHYLENE GLYCOL [Concomitant]
     Active Substance: POLYETHYLENE GLYCOL
     Dates: start: 202108

REACTIONS (1)
  - Cardiac arrest [Recovered/Resolved]

NARRATIVE: CASE EVENT DATE: 20211127
